FAERS Safety Report 16268586 (Version 1)
Quarter: 2019Q2

REPORT INFORMATION
  Report Type: Spontaneous
  Country: ES (occurrence: ES)
  Receive Date: 20190503
  Receipt Date: 20190503
  Transmission Date: 20190711
  Serious: Yes (Other)
  Sender: FDA-Public Use
  Company Number: ES-ACCORD-125563

PATIENT
  Age: 72 Year
  Sex: Female

DRUGS (2)
  1. METHYLPREDNISOLONE. [Suspect]
     Active Substance: METHYLPREDNISOLONE
     Indication: POLYMYALGIA RHEUMATICA
  2. METHOTREXATE. [Suspect]
     Active Substance: METHOTREXATE
     Indication: POLYMYALGIA RHEUMATICA

REACTIONS (5)
  - Hypoproteinaemia [Unknown]
  - Anaemia macrocytic [Unknown]
  - Gastric ulcer [Recovering/Resolving]
  - Cytomegalovirus infection [Recovering/Resolving]
  - Hypoalbuminaemia [Unknown]
